FAERS Safety Report 9173852 (Version 1)
Quarter: 2013Q1

REPORT INFORMATION
  Report Type: Spontaneous
  Country: DE (occurrence: DE)
  Receive Date: 20130320
  Receipt Date: 20130320
  Transmission Date: 20140127
  Serious: Yes (Other)
  Sender: FDA-Public Use
  Company Number: DE-BRISTOL-MYERS SQUIBB COMPANY-17468679

PATIENT
  Age: 52 Year
  Sex: Male

DRUGS (2)
  1. SPRYCEL [Suspect]
     Indication: CHRONIC MYELOID LEUKAEMIA
  2. NILOTINIB [Concomitant]
     Dosage: ALSO TAKEN IN JUL-2012, SEP-2012, OCT-2012 AND IN JAN-2013
     Dates: start: 20110420

REACTIONS (3)
  - Oedema [Unknown]
  - Blood count abnormal [Unknown]
  - General physical health deterioration [Unknown]
